FAERS Safety Report 20113253 (Version 2)
Quarter: 2022Q1

REPORT INFORMATION
  Report Type: Spontaneous
  Country: IN (occurrence: IN)
  Receive Date: 20211125
  Receipt Date: 20220218
  Transmission Date: 20220423
  Serious: Yes (Death, Other)
  Sender: FDA-Public Use
  Company Number: IN-PFIZER INC-202100986923

PATIENT
  Age: 69 Year
  Sex: Female

DRUGS (3)
  1. PALBOCICLIB [Suspect]
     Active Substance: PALBOCICLIB
     Indication: Breast cancer metastatic
     Dosage: 125 MG, 1X/DAY (21 DAYS ON AND 7 DAYS OFF)
     Route: 048
     Dates: start: 20171004, end: 2022
  2. FULVESTRANT [Concomitant]
     Active Substance: FULVESTRANT
     Dosage: 500MG ONCE IN 28 DAYS
     Route: 030
  3. FULVESTRANT [Concomitant]
     Active Substance: FULVESTRANT
     Dosage: 500 MG, MONTHLY
     Route: 030

REACTIONS (4)
  - Cardiac arrest [Fatal]
  - Cauda equina syndrome [Unknown]
  - Lower respiratory tract infection [Unknown]
  - Off label use [Unknown]
